FAERS Safety Report 9606675 (Version 3)
Quarter: 2014Q2

REPORT INFORMATION
  Report Type: Spontaneous
  Country: US (occurrence: US)
  Receive Date: 20131008
  Receipt Date: 20140519
  Transmission Date: 20141212
  Serious: No
  Sender: FDA-Public Use
  Company Number: US-AMGEN-USASP2013055475

PATIENT
  Age: 62 Year
  Sex: Female
  Weight: 62.59 kg

DRUGS (9)
  1. PROLIA [Suspect]
     Indication: OSTEOPOROSIS POSTMENOPAUSAL
     Dosage: 60 MG, UNK
     Route: 065
     Dates: start: 20130523
  2. GLUCOSAMINE [Concomitant]
     Indication: ARTHRALGIA
  3. CALCIUM WITH VITAMIN D             /00944201/ [Concomitant]
  4. VITAMIN D                          /00107901/ [Concomitant]
     Dosage: 5000 IU, QD
  5. VITAMIN E                          /00110501/ [Concomitant]
  6. VITAMIN C                          /00008001/ [Concomitant]
  7. VITAMIN B6 [Concomitant]
  8. CLARITIN                           /00413701/ [Concomitant]
     Indication: SINUS HEADACHE
  9. ADVIL                              /00044201/ [Concomitant]
     Indication: SINUS HEADACHE

REACTIONS (4)
  - Joint swelling [Unknown]
  - Arthritis [Unknown]
  - Gait disturbance [Unknown]
  - Arthralgia [Unknown]
